FAERS Safety Report 15865825 (Version 1)
Quarter: 2019Q1

REPORT INFORMATION
  Report Type: Spontaneous
  Country: CA (occurrence: CA)
  Receive Date: 20190125
  Receipt Date: 20190125
  Transmission Date: 20190417
  Serious: Yes (Hospitalization)
  Sender: FDA-Public Use
  Company Number: CA-TEVA-2019-CA-1003792

PATIENT
  Age: 26 Year
  Sex: Female

DRUGS (8)
  1. PREDNISONE. [Suspect]
     Active Substance: PREDNISONE
     Indication: PRODUCT USED FOR UNKNOWN INDICATION
     Route: 065
  2. INFLIXIMAB [Suspect]
     Active Substance: INFLIXIMAB
     Indication: CROHN^S DISEASE
     Route: 042
  3. DILAUDID [Concomitant]
     Active Substance: HYDROMORPHONE HYDROCHLORIDE
     Route: 065
  4. SOLU-MEDROL [Concomitant]
     Active Substance: METHYLPREDNISOLONE SODIUM SUCCINATE
     Route: 042
  5. ERGOCALCIFEROL. [Concomitant]
     Active Substance: ERGOCALCIFEROL
     Dosage: 100 MILLIGRAM DAILY;
  6. DILAUDID [Concomitant]
     Active Substance: HYDROMORPHONE HYDROCHLORIDE
     Route: 058
  7. FERROUS SULFATE. [Concomitant]
     Active Substance: FERROUS SULFATE
     Dosage: 300 MILLIGRAM DAILY;
  8. VITAMIN C [Concomitant]
     Active Substance: ASCORBIC ACID

REACTIONS (1)
  - Drug effect incomplete [Recovered/Resolved]
